FAERS Safety Report 9858736 (Version 3)
Quarter: 2014Q1

REPORT INFORMATION
  Report Type: Spontaneous
  Country: US (occurrence: US)
  Receive Date: 20140131
  Receipt Date: 20140319
  Transmission Date: 20141002
  Serious: Yes (Other)
  Sender: FDA-Public Use
  Company Number: US-ASTRAZENECA-2014SE05831

PATIENT
  Age: 26048 Day
  Sex: Female
  Weight: 84.8 kg

DRUGS (23)
  1. SYMBICORT [Suspect]
     Indication: CHRONIC OBSTRUCTIVE PULMONARY DISEASE
     Dosage: 160/4.5 MCG, 2 PUFFS , BID, ON 10-JAN SKIPPED THE EVENING DOSE
     Route: 055
     Dates: start: 20140110, end: 20140111
  2. SYMBICORT [Suspect]
     Indication: BRONCHITIS CHRONIC
     Dosage: 160/4.5 MCG, 2 PUFFS , BID, ON 10-JAN SKIPPED THE EVENING DOSE
     Route: 055
     Dates: start: 20140110, end: 20140111
  3. LISINOPRIL [Suspect]
     Route: 048
  4. METOPROLOL [Suspect]
     Indication: ARRHYTHMIA
     Route: 048
  5. MORPHINE [Suspect]
     Route: 065
  6. SYNTHROID [Concomitant]
     Dosage: GENERIC, 0.088 UNK
  7. GABAPENTIN [Concomitant]
  8. SPIRIVA [Concomitant]
  9. HYDROCODONE IBUPROFEN [Concomitant]
  10. GLIMEPIRIDE [Concomitant]
     Indication: DIABETES MELLITUS
  11. CLONIDINE [Concomitant]
  12. AMLODIPINE [Concomitant]
  13. ASPIRIN [Concomitant]
     Route: 048
  14. HCTZ [Concomitant]
     Route: 048
  15. CLONAZEPAM [Concomitant]
     Indication: BACK PAIN
  16. FENOBRATE [Concomitant]
     Indication: BACK PAIN
  17. LEVOTHYROXIN [Concomitant]
  18. MAGNESIUM OXIDE [Concomitant]
  19. VITAMIN E [Concomitant]
  20. B COMPLEX [Concomitant]
  21. VIT D [Concomitant]
  22. ALBUTEROL SULPHATE [Concomitant]
     Dosage: OID
     Dates: end: 201401
  23. ALBUTEROL SULPHATE [Concomitant]
     Dosage: BID
     Dates: start: 201401

REACTIONS (4)
  - Dyspnoea [Recovered/Resolved]
  - Adverse drug reaction [Unknown]
  - Dyspnoea [Recovered/Resolved]
  - Drug hypersensitivity [Not Recovered/Not Resolved]
